FAERS Safety Report 7723165 (Version 3)
Quarter: 2013Q4

REPORT INFORMATION
  Report Type: Spontaneous
  Country: US (occurrence: US)
  Receive Date: 20101220
  Receipt Date: 20131003
  Transmission Date: 20140711
  Serious: Yes (Death)
  Sender: FDA-Public Use
  Company Number: US-ALEXION-A201001592

PATIENT
  Age: 35 Year
  Sex: Female
  Weight: 63 kg

DRUGS (11)
  1. CALCITRATE [Concomitant]
     Indication: HYPOCALCAEMIA
     Dosage: 200 MG, TID
     Route: 048
     Dates: start: 201010, end: 201012
  2. FOLIC ACID [Concomitant]
     Indication: ANAEMIA
     Dosage: 1 MG, QD
     Route: 048
     Dates: start: 201010, end: 201012
  3. MORPHINE [Concomitant]
     Dosage: UNK
     Dates: start: 201010
  4. PROTONIX [Concomitant]
     Indication: GASTROOESOPHAGEAL REFLUX DISEASE
     Dosage: 40 MG, QD
     Route: 048
     Dates: start: 201011, end: 201012
  5. SOLIRIS 300MG [Suspect]
     Indication: COLD TYPE HAEMOLYTIC ANAEMIA
     Dosage: 900 MG, SINGLE
     Route: 042
     Dates: start: 20101210, end: 20101210
  6. SOLIRIS 300MG [Suspect]
     Indication: OFF LABEL USE
  7. PLASMA [Concomitant]
     Dosage: UNK
  8. BLOOD TRANSFUSION, AUXILIARY PRODUCTS [Concomitant]
  9. CORTICOSTEROIDS [Concomitant]
  10. ZOFRAN [Concomitant]
     Indication: NAUSEA
     Dosage: 4 MG, PRN
     Route: 042
     Dates: start: 201010, end: 201012
  11. BENADRYL [Concomitant]
     Indication: PRURITUS
     Dosage: 2.5 MG, PRN
     Route: 048
     Dates: start: 201010, end: 201012

REACTIONS (6)
  - Renal failure [Fatal]
  - Pulseless electrical activity [Fatal]
  - Circulatory collapse [Fatal]
  - Lactic acidosis [Fatal]
  - Hypoperfusion [Fatal]
  - Respiratory failure [Fatal]
